FAERS Safety Report 9618948 (Version 2)
Quarter: 2013Q4

REPORT INFORMATION
  Report Type: Spontaneous
  Country: US (occurrence: US)
  Receive Date: 20131014
  Receipt Date: 20131017
  Transmission Date: 20140711
  Serious: Yes (Death, Other)
  Sender: FDA-Public Use
  Company Number: US-PFIZER INC-2013291728

PATIENT
  Age: 41 Year
  Sex: Male
  Weight: 129.25 kg

DRUGS (7)
  1. XANAX [Suspect]
     Dosage: 1 MG, 4X/DAY (1 MG, Q6H)
     Route: 048
  2. MS CONTIN [Suspect]
     Indication: PAIN
     Dosage: 100 MG, 3X/DAY
     Route: 048
  3. OXYCONTIN [Suspect]
     Dosage: 160 MG, 1X/DAY AM
     Route: 048
  4. OXYCONTIN [Suspect]
     Dosage: 240 MG, 1X/DAY (HS)
     Route: 048
  5. CODEINE [Concomitant]
     Dosage: UNK
  6. INSULIN [Concomitant]
     Dosage: UNK
  7. CAFFEINE [Concomitant]
     Dosage: UNK

REACTIONS (4)
  - Accidental death [Fatal]
  - Toxicity to various agents [Fatal]
  - Accidental overdose [Fatal]
  - Drug abuse [Fatal]
